FAERS Safety Report 23864109 (Version 1)
Quarter: 2024Q2

REPORT INFORMATION
  Report Type: Spontaneous
  Country: US (occurrence: None)
  Receive Date: 20240516
  Receipt Date: 20240516
  Transmission Date: 20240716
  Serious: Yes (Death, Hospitalization)
  Sender: FDA-Public Use
  Company Number: None

PATIENT
  Age: 51 Year
  Sex: Male
  Weight: 72 kg

DRUGS (1)
  1. SKYRIZI [Suspect]
     Active Substance: RISANKIZUMAB-RZAA
     Indication: Crohn^s disease
     Dates: start: 20240108, end: 20240415

REACTIONS (6)
  - Anaemia [None]
  - Dehydration [None]
  - Decreased appetite [None]
  - Adult failure to thrive [None]
  - Sepsis [None]
  - Organ failure [None]

NARRATIVE: CASE EVENT DATE: 20240404
